FAERS Safety Report 18430769 (Version 1)
Quarter: 2020Q4

REPORT INFORMATION
  Report Type: Spontaneous
  Country: US (occurrence: US)
  Receive Date: 20201027
  Receipt Date: 20201027
  Transmission Date: 20210114
  Serious: No
  Sender: FDA-Public Use
  Company Number: US-MYLANLABS-2020M1088268

PATIENT
  Sex: Female
  Weight: 50 kg

DRUGS (1)
  1. PROCTOFOAM HC [Suspect]
     Active Substance: HYDROCORTISONE ACETATE\PRAMOXINE HYDROCHLORIDE
     Indication: RECTAL PROLAPSE
     Dosage: UNK UNK, BID(TWICE A DAY)
     Route: 065

REACTIONS (1)
  - Off label use [Not Recovered/Not Resolved]
